FAERS Safety Report 13852310 (Version 1)
Quarter: 2017Q3

REPORT INFORMATION
  Report Type: Spontaneous
  Country: US (occurrence: US)
  Receive Date: 20170809
  Receipt Date: 20170809
  Transmission Date: 20171127
  Serious: No
  Sender: FDA-Public Use
  Company Number: US-ROCHE-598903

PATIENT
  Age: 59 Year
  Sex: Female

DRUGS (4)
  1. VITAMIN [Concomitant]
     Active Substance: VITAMINS
     Route: 065
  2. VITAMIN D [Concomitant]
     Active Substance: CHOLECALCIFEROL
     Route: 065
  3. CALCIUM [Concomitant]
     Active Substance: CALCIUM
     Route: 065
  4. BONIVA [Suspect]
     Active Substance: IBANDRONATE SODIUM
     Indication: OSTEOPOROSIS
     Dosage: OTHER INDICATION: OSTEOPENIA OF THE SPINE
     Route: 048

REACTIONS (9)
  - Feeling cold [Not Recovered/Not Resolved]
  - Dysphagia [Unknown]
  - Bone density decreased [Unknown]
  - Headache [Unknown]
  - Feeling of body temperature change [Unknown]
  - Hyperhidrosis [Not Recovered/Not Resolved]
  - Pain [Unknown]
  - Back pain [Unknown]
  - Rhinorrhoea [Not Recovered/Not Resolved]
